FAERS Safety Report 16947642 (Version 1)
Quarter: 2019Q4

REPORT INFORMATION
  Report Type: Report from Study
  Country: US (occurrence: US)
  Receive Date: 20191022
  Receipt Date: 20191022
  Transmission Date: 20200122
  Serious: Yes (Death, Hospitalization)
  Sender: FDA-Public Use
  Company Number: US-EXELIXIS-CABO-19023744

PATIENT
  Age: 68 Year
  Sex: Male

DRUGS (1)
  1. CABOMETYX [Suspect]
     Active Substance: CABOZANTINIB S-MALATE
     Indication: HEPATIC CANCER
     Dosage: 60 MG, QD (AM- W/O FOOD)
     Dates: start: 20190821, end: 20190930

REACTIONS (10)
  - Chromaturia [Unknown]
  - Weight decreased [Not Recovered/Not Resolved]
  - Dysphagia [Unknown]
  - Dysphonia [Not Recovered/Not Resolved]
  - Death [Fatal]
  - Tongue erythema [Not Recovered/Not Resolved]
  - Dry mouth [Not Recovered/Not Resolved]
  - Decreased appetite [Not Recovered/Not Resolved]
  - Oral pain [Not Recovered/Not Resolved]
  - Alpha 1 foetoprotein decreased [Unknown]

NARRATIVE: CASE EVENT DATE: 20190926
